FAERS Safety Report 4943780-9 (Version None)
Quarter: 2006Q1

REPORT INFORMATION
  Report Type: 
  Country: None (occurrence: None)
  Receive Date: 20060314
  Receipt Date: 20060223
  Transmission Date: 20060701
  Serious: Yes (Hospitalization)
  Sender: FDA-Public Use
  Company Number: JP-MERCK-0602USA05850

PATIENT
  Age: 68 Year
  Sex: Male
  Weight: 65 kg

DRUGS (6)
  1. COZAAR [Suspect]
     Indication: HYPERTENSION
     Route: 048
     Dates: start: 20041216, end: 20060216
  2. ALESION [Concomitant]
     Indication: EOSINOPHILIA
     Route: 048
     Dates: start: 20050405, end: 20060216
  3. NEORAL [Suspect]
     Indication: EOSINOPHILIA
     Route: 048
     Dates: start: 20050704, end: 20060216
  4. PREDONINE [Concomitant]
     Indication: EOSINOPHILIA
     Route: 048
     Dates: start: 20040903, end: 20060216
  5. LANSOPRAZOLE [Concomitant]
     Indication: GASTRIC DISORDER
     Route: 048
     Dates: start: 20041208, end: 20060216
  6. FOSAMAX [Concomitant]
     Indication: OSTEOPOROSIS
     Route: 048
     Dates: start: 20051101, end: 20060216

REACTIONS (3)
  - BLOOD PRESSURE DECREASED [None]
  - RENAL FAILURE [None]
  - RHABDOMYOLYSIS [None]
